FAERS Safety Report 9909129 (Version 5)
Quarter: 2014Q3

REPORT INFORMATION
  Report Type: Spontaneous
  Country: US (occurrence: US)
  Receive Date: 20140219
  Receipt Date: 20140919
  Transmission Date: 20150326
  Serious: Yes (Hospitalization, Other)
  Sender: FDA-Public Use
  Company Number: US-009507513-1402USA004422

PATIENT
  Sex: Female
  Weight: 58.5 kg

DRUGS (7)
  1. CALCIUM (UNSPECIFIED) [Concomitant]
     Active Substance: CALCIUM
     Dosage: 500-1200 MG, QD
     Dates: start: 2005
  2. VITAMIN D [Concomitant]
     Active Substance: CHOLECALCIFEROL
     Dosage: 800-2400 IU QD
     Dates: start: 2005
  3. FOSAMAX PLUS D [Suspect]
     Active Substance: ALENDRONATE SODIUM\CHOLECALCIFEROL
     Dosage: UNK
     Route: 048
  4. FOSAMAX [Suspect]
     Active Substance: ALENDRONATE SODIUM
     Indication: OSTEOPOROSIS
  5. ALENDRONATE SODIUM. [Suspect]
     Active Substance: ALENDRONATE SODIUM
     Dosage: 70 MG, UNK
  6. OMEGA-3 MARINE TRIGLYCERIDES [Concomitant]
     Active Substance: FISH OIL
     Dosage: 1200 MG, TID
     Dates: start: 2005
  7. FOSAMAX [Suspect]
     Active Substance: ALENDRONATE SODIUM
     Indication: OSTEOPENIA
     Dosage: 70 MG, QW
     Route: 048
     Dates: start: 20060403, end: 20130820

REACTIONS (42)
  - Haemorrhagic anaemia [Unknown]
  - Bursitis [Unknown]
  - Back pain [Unknown]
  - Drug intolerance [Unknown]
  - Pruritus [Unknown]
  - Intramedullary rod insertion [Unknown]
  - Intramedullary rod insertion [Unknown]
  - Tachycardia [Unknown]
  - Somnolence [Unknown]
  - Femur fracture [Unknown]
  - Low turnover osteopathy [Unknown]
  - Osteoarthritis [Unknown]
  - Ureteric obstruction [Unknown]
  - Tonsillectomy [Unknown]
  - Hepatic enzyme increased [Unknown]
  - Exostosis [Unknown]
  - Pain in extremity [Unknown]
  - Pyeloplasty [Unknown]
  - Anxiety [Not Recovered/Not Resolved]
  - Hypercalciuria [Unknown]
  - Nephrolithiasis [Unknown]
  - Large intestine polyp [Unknown]
  - Vitamin D deficiency [Unknown]
  - Drug effect incomplete [Unknown]
  - Coronary artery disease [Unknown]
  - Hypokalaemia [Unknown]
  - Bone trimming [Unknown]
  - Foot fracture [Unknown]
  - Blood pressure increased [Unknown]
  - Musculoskeletal pain [Unknown]
  - Lacrimal duct procedure [Unknown]
  - Arthropathy [Unknown]
  - Constipation [Unknown]
  - Cholecystectomy [Unknown]
  - Depression [Not Recovered/Not Resolved]
  - Hypertension [Unknown]
  - Iliotibial band syndrome [Unknown]
  - Iron deficiency anaemia [Unknown]
  - Groin pain [Unknown]
  - Back pain [Unknown]
  - Musculoskeletal pain [Unknown]
  - Pain in extremity [Unknown]

NARRATIVE: CASE EVENT DATE: 200606
